FAERS Safety Report 8826260 (Version 1)
Quarter: 2012Q4

REPORT INFORMATION
  Report Type: 
  Country: US (occurrence: US)
  Receive Date: 20121008
  Receipt Date: 20121008
  Transmission Date: 20130627
  Serious: Yes (Hospitalization, Other)
  Sender: FDA-Public Use
  Company Number: US-BAYER-2012-103617

PATIENT
  Sex: Female

DRUGS (4)
  1. MIRENA [Suspect]
     Dosage: 20 mcg/24hr, CONT
     Route: 015
     Dates: start: 2009
  2. PARAGARD [Suspect]
     Dosage: UNK
     Dates: start: 2009
  3. HORMONE REPLACEMENT THERAPY [Concomitant]
  4. PREDNISONE [Concomitant]

REACTIONS (8)
  - Hormone level abnormal [None]
  - General physical health deterioration [None]
  - Cold sweat [None]
  - Hot flush [None]
  - Malaise [None]
  - Depression [None]
  - Genital haemorrhage [None]
  - Intestinal obstruction [None]
